FAERS Safety Report 13832777 (Version 2)
Quarter: 2017Q4

REPORT INFORMATION
  Report Type: Spontaneous
  Country: US (occurrence: US)
  Receive Date: 20170804
  Receipt Date: 20171227
  Transmission Date: 20180320
  Serious: No
  Sender: FDA-Public Use
  Company Number: US-PFIZER INC-2017336665

PATIENT
  Age: 68 Year
  Sex: Female
  Weight: 55.34 kg

DRUGS (8)
  1. LYRICA [Suspect]
     Active Substance: PREGABALIN
     Dosage: 50 MG, 1X/DAY
     Dates: start: 201704
  2. HYDROCODONE/ACETAMINOPHEN [Concomitant]
     Active Substance: ACETAMINOPHEN\HYDROCODONE
     Dosage: UNK UNK, 1X/DAY (1/2 TABLET 5.325)
  3. VOLTAREN [Concomitant]
     Active Substance: DICLOFENAC SODIUM
     Dosage: UNK UNK, AS NEEDED
  4. ARNICA /01006901/ [Concomitant]
     Dosage: UNK UNK, AS NEEDED
  5. BC /00110301/ [Concomitant]
     Active Substance: ASPIRIN\CAFFEINE\SALICYLAMIDE
     Dosage: UNK
  6. LYRICA [Suspect]
     Active Substance: PREGABALIN
     Dosage: UNK UNK, 2X/DAY
  7. BACLOFEN. [Concomitant]
     Active Substance: BACLOFEN
     Indication: MUSCLE DISORDER
     Dosage: 10 MG AS NEEDED AT NIGHTTIME
     Route: 048
  8. LYRICA [Suspect]
     Active Substance: PREGABALIN
     Indication: MYOCLONUS
     Dosage: 50 MG, 1X/DAY
     Route: 048
     Dates: start: 20170628

REACTIONS (2)
  - Drug ineffective for unapproved indication [Not Recovered/Not Resolved]
  - Depression [Recovering/Resolving]

NARRATIVE: CASE EVENT DATE: 20170628
